FAERS Safety Report 4514849-8 (Version None)
Quarter: 2004Q4

REPORT INFORMATION
  Report Type: 
  Country: None (occurrence: None)
  Receive Date: 20041201
  Receipt Date: 20041117
  Transmission Date: 20050328
  Serious: Yes (Life-Threatening, Hospitalization, Disabling, Other)
  Sender: FDA-Public Use
  Company Number: GB-BRISTOL-MYERS SQUIBB COMPANY-12768032

PATIENT
  Age: 48 Year
  Sex: Female

DRUGS (10)
  1. ABILIFY [Suspect]
     Indication: DEPRESSION
     Route: 048
     Dates: start: 20040908, end: 20041007
  2. EFFEXOR XR [Concomitant]
     Indication: DEPRESSION
     Dates: start: 20040826, end: 20040927
  3. CIPRAMIL [Concomitant]
     Indication: DEPRESSION
     Dates: end: 20040827
  4. ATORVASTATIN CALCIUM [Concomitant]
     Dates: end: 20041010
  5. PREMIQUE [Concomitant]
     Dates: end: 20041006
  6. MOVICOL [Concomitant]
     Indication: CONSTIPATION
     Dates: start: 20040917, end: 20041009
  7. CLONAZEPAM [Concomitant]
     Indication: AGITATION
     Dates: start: 20041012, end: 20041020
  8. DIAZEPAM [Concomitant]
     Indication: AGITATION
     Dates: start: 20041027
  9. CALOGEN [Concomitant]
  10. FRESUBIN [Concomitant]

REACTIONS (7)
  - BLOOD PRESSURE FLUCTUATION [None]
  - CONFUSIONAL STATE [None]
  - HEART RATE IRREGULAR [None]
  - HYPERHIDROSIS [None]
  - HYPERPYREXIA [None]
  - HYPERTONIA [None]
  - NEUROLEPTIC MALIGNANT SYNDROME [None]
